FAERS Safety Report 4290551-5 (Version None)
Quarter: 2004Q1

REPORT INFORMATION
  Report Type: 
  Country: None (occurrence: None)
  Receive Date: 20040210
  Receipt Date: 20040209
  Transmission Date: 20041129
  Serious: Yes (Hospitalization)
  Sender: FDA-Public Use
  Company Number: 04-02-0206

PATIENT
  Age: 56 Year
  Sex: Female

DRUGS (1)
  1. CLOZAPINE [Suspect]
     Indication: SCHIZOAFFECTIVE DISORDER
     Dosage: 75-125MG QD ORAL
     Route: 048
     Dates: start: 20020501

REACTIONS (1)
  - WATER INTOXICATION [None]
